FAERS Safety Report 8556861-8 (Version None)
Quarter: 2012Q2

REPORT INFORMATION
  Report Type: 
  Country: None (occurrence: None)
  Receive Date: 20120418
  Receipt Date: 20100114
  Transmission Date: 20120825
  Serious: Yes (Other)
  Sender: FDA-Public Use
  Company Number: PHEH20005US04201

PATIENT
  Age: 66 Year
  Sex: Female
  Weight: 58.5 kg

DRUGS (5)
  1. PROVERA [Suspect]
     Indication: HORMONE REPLACEMENT THERAPY
     Dosage: 10 MG, ORAL
     Route: 048
     Dates: start: 19900101, end: 19970317
  2. PREMARIN [Suspect]
     Indication: HORMONE REPLACEMENT THERAPY
     Dosage: ,  TOPICAL
     Route: 061
     Dates: start: 20011005, end: 20011005
  3. CHLORTHALIDONE [Concomitant]
  4. PREMPRO [Suspect]
     Indication: HORMONE REPLACEMENT THERAPY
     Dosage: 2.5 MG, ORAL
     Route: 048
     Dates: start: 19970607, end: 20000523
  5. ESTRADERM [Suspect]
     Indication: HORMONE REPLACEMENT THERAPY
     Dosage: 0.05 MG,  TRANSDERMAL
     Route: 062
     Dates: start: 19960127, end: 19970503

REACTIONS (13)
  - RADIOTHERAPY [None]
  - BREAST CALCIFICATIONS [None]
  - BREAST CYST [None]
  - BREAST LUMP REMOVAL [None]
  - DIAGNOSTIC PROCEDURE [None]
  - ELECTROCARDIOGRAM T WAVE INVERSION [None]
  - MASTECTOMY [None]
  - FIBROCYSTIC BREAST DISEASE [None]
  - BRACHYTHERAPY TO BREAST [None]
  - BLOOD CHOLESTEROL INCREASED [None]
  - OSTEOPENIA [None]
  - BREAST CANCER [None]
  - HYPERTENSION [None]
